FAERS Safety Report 6865343-0 (Version None)
Quarter: 2010Q3

REPORT INFORMATION
  Report Type: 
  Country: None (occurrence: None)
  Receive Date: 20100721
  Receipt Date: 20080419
  Transmission Date: 20110219
  Serious: No
  Sender: FDA-Public Use
  Company Number: US-PFIZER INC-2008034522

PATIENT
  Sex: Female
  Weight: 63.636 kg

DRUGS (8)
  1. CHANTIX [Suspect]
     Indication: SMOKING CESSATION THERAPY
     Dates: start: 20080401
  2. EFFEXOR [Concomitant]
     Indication: DEPRESSION
  3. DILANTIN [Concomitant]
     Indication: CONVULSION
  4. LORTAB [Concomitant]
  5. LISINOPRIL [Concomitant]
     Indication: HYPERTENSION
  6. NIFEDIPINE [Concomitant]
     Indication: HYPERTENSION
  7. ACIPHEX [Concomitant]
  8. XANAX [Concomitant]

REACTIONS (1)
  - NIGHTMARE [None]
